FAERS Safety Report 10909912 (Version 1)
Quarter: 2015Q1

REPORT INFORMATION
  Report Type: Spontaneous
  Country: US (occurrence: US)
  Receive Date: 20150312
  Receipt Date: 20150312
  Transmission Date: 20150721
  Serious: No
  Sender: FDA-Public Use
  Company Number: US-SA-2014SA078995

PATIENT
  Age: 84 Year
  Sex: Male

DRUGS (1)
  1. NASACORT ALLERGY 24HR [Suspect]
     Active Substance: TRIAMCINOLONE ACETONIDE
     Indication: RHINORRHOEA
     Dosage: START DATE: 4 DAYS AGO, DOSAGE:120,0,055 MG PUFFS
     Route: 065
     Dates: end: 20140606

REACTIONS (1)
  - Cough [Not Recovered/Not Resolved]
